FAERS Safety Report 24380650 (Version 2)
Quarter: 2024Q4

REPORT INFORMATION
  Report Type: Spontaneous
  Country: US (occurrence: US)
  Receive Date: 20240930
  Receipt Date: 20241001
  Transmission Date: 20250114
  Serious: No
  Sender: TRAVERE THERAPEUTICS
  Company Number: US-TRAVERE-2024TVT00918

PATIENT
  Sex: Female

DRUGS (1)
  1. FILSPARI [Suspect]
     Active Substance: SPARSENTAN
     Indication: IgA nephropathy
     Route: 048
     Dates: start: 20240913

REACTIONS (6)
  - Hypotension [Recovered/Resolved]
  - Ophthalmic migraine [Unknown]
  - Photopsia [Unknown]
  - Feeling abnormal [Unknown]
  - Heart rate decreased [None]
  - Palpitations [Recovered/Resolved]
